FAERS Safety Report 9722841 (Version 2)
Quarter: 2014Q1

REPORT INFORMATION
  Report Type: Spontaneous
  Country: BE (occurrence: BE)
  Receive Date: 20131202
  Receipt Date: 20140107
  Transmission Date: 20141002
  Serious: Yes (Hospitalization)
  Sender: FDA-Public Use
  Company Number: BE-JNJFOC-20131116980

PATIENT
  Age: 70 Year
  Sex: Male

DRUGS (7)
  1. XARELTO [Suspect]
     Indication: CEREBROVASCULAR ACCIDENT
     Route: 048
     Dates: start: 20130830
  2. XARELTO [Suspect]
     Indication: ATRIAL FIBRILLATION
     Route: 048
     Dates: start: 20130830
  3. GLUCOPHAGE [Suspect]
     Indication: DIABETES MELLITUS
     Route: 065
     Dates: start: 199412
  4. LOORTAN [Concomitant]
     Route: 065
     Dates: start: 20101216
  5. JANUVIA [Concomitant]
     Indication: DIABETES MELLITUS
     Route: 065
  6. EMCONCOR [Concomitant]
     Route: 065
     Dates: start: 20110817
  7. LANTUS [Concomitant]
     Route: 065

REACTIONS (8)
  - Renal failure acute [Recovered/Resolved]
  - Lactic acidosis [Recovered/Resolved]
  - Sepsis [Unknown]
  - Cardiac failure [Unknown]
  - Hypertension [Unknown]
  - Liver function test abnormal [Unknown]
  - Coagulopathy [Unknown]
  - Cirrhosis alcoholic [Unknown]
